FAERS Safety Report 20829776 (Version 3)
Quarter: 2022Q3

REPORT INFORMATION
  Report Type: Spontaneous
  Country: ES (occurrence: ES)
  Receive Date: 20220513
  Receipt Date: 20220719
  Transmission Date: 20221027
  Serious: Yes (Death, Hospitalization, Other)
  Sender: FDA-Public Use
  Company Number: ES-SA-SAC20220421001121

PATIENT
  Sex: Female

DRUGS (2)
  1. LIBTAYO [Suspect]
     Active Substance: CEMIPLIMAB-RWLC
     Indication: Cervix carcinoma stage IV
     Dosage: 350 MG, Q3W
     Route: 042
     Dates: start: 20220224, end: 20220317
  2. CEMIPLIMAB [Suspect]
     Active Substance: CEMIPLIMAB
     Indication: Cervix carcinoma stage IV
     Dosage: 350 MG, Q3W
     Route: 042
     Dates: start: 20220224, end: 20220317

REACTIONS (9)
  - Urosepsis [Fatal]
  - Respiratory failure [Fatal]
  - Immune-mediated lung disease [Fatal]
  - Urosepsis [Unknown]
  - Lung opacity [Unknown]
  - Pulmonary septal thickening [Unknown]
  - Lung infiltration [Unknown]
  - Pleural effusion [Unknown]
  - Dyspnoea [Unknown]

NARRATIVE: CASE EVENT DATE: 20220317
